FAERS Safety Report 7680884-4 (Version None)
Quarter: 2011Q3

REPORT INFORMATION
  Report Type: 
  Country: None (occurrence: None)
  Receive Date: 20110812
  Receipt Date: 20110809
  Transmission Date: 20111222
  Serious: Yes (Other)
  Sender: FDA-Public Use
  Company Number: JP-EISAI INC-E2090-01717-SPO-JP

PATIENT
  Age: 1 Year
  Sex: Male

DRUGS (4)
  1. ONON [Concomitant]
     Dosage: UNKNOWN
     Route: 048
  2. TOPIRAMATE [Concomitant]
     Dosage: UNKNOWN
     Route: 048
  3. ZONISAMIDE [Suspect]
     Dosage: UNKNOWN
     Route: 048
  4. ZONISAMIDE [Suspect]
     Dosage: DOSE INCREASED
     Route: 048

REACTIONS (1)
  - RHABDOMYOLYSIS [None]
